FAERS Safety Report 23372782 (Version 4)
Quarter: 2024Q1

REPORT INFORMATION
  Report Type: Spontaneous
  Country: US (occurrence: US)
  Receive Date: 20240105
  Receipt Date: 20240305
  Transmission Date: 20240409
  Serious: No
  Sender: FDA-Public Use
  Company Number: US-PFIZER INC-202400000153

PATIENT
  Age: 70 Year
  Sex: Male
  Weight: 87.982 kg

DRUGS (4)
  1. PAXLOVID [Suspect]
     Active Substance: NIRMATRELVIR\RITONAVIR
     Indication: COVID-19 treatment
     Dosage: UNK
     Route: 048
     Dates: start: 20231215, end: 20231221
  2. GLUCOSAMINE MSM [Concomitant]
  3. CURCUMIN [Concomitant]
     Active Substance: CURCUMIN
  4. FISH OIL [Concomitant]
     Active Substance: FISH OIL

REACTIONS (3)
  - COVID-19 [Recovered/Resolved]
  - Disease recurrence [Recovered/Resolved]
  - Inappropriate schedule of product administration [Unknown]

NARRATIVE: CASE EVENT DATE: 20231201
